FAERS Safety Report 5480308-1 (Version None)
Quarter: 2007Q3

REPORT INFORMATION
  Report Type: 
  Country: None (occurrence: None)
  Receive Date: 20070913
  Receipt Date: 20070220
  Transmission Date: 20080115
  Serious: Yes (Hospitalization)
  Sender: FDA-Public Use
  Company Number: PHEH2007US02268

PATIENT
  Sex: Female
  Weight: 77.1 kg

DRUGS (4)
  1. DIOVAN [Suspect]
     Indication: HYPERTENSION
     Dosage: 160 MG, QD,
     Dates: end: 20061201
  2. PREVACID [Suspect]
     Indication: GASTRITIS
     Dosage: 30 MG, BID
     Dates: end: 20061201
  3. PEPCID [Suspect]
     Indication: GASTRITIS
  4. TOPROL-XL [Concomitant]

REACTIONS (5)
  - DROOLING [None]
  - HYPERSENSITIVITY [None]
  - LIP SWELLING [None]
  - PALPITATIONS [None]
  - PRURITUS GENERALISED [None]
